FAERS Safety Report 22833950 (Version 4)
Quarter: 2024Q4

REPORT INFORMATION
  Report Type: Report from Study
  Country: US (occurrence: US)
  Receive Date: 20230817
  Receipt Date: 20241118
  Transmission Date: 20250115
  Serious: Yes (Death, Life-Threatening, Hospitalization, Other)
  Sender: GENMAB
  Company Number: US-GENMAB-2023-01435

PATIENT
  Age: 60 Year
  Sex: Female
  Weight: 54.7 kg

DRUGS (4)
  1. EPKINLY [Suspect]
     Active Substance: EPCORITAMAB-BYSP
     Indication: Diffuse large B-cell lymphoma
     Dosage: 0.16 MILLIGRAM, TOTAL
     Route: 058
     Dates: start: 20230727, end: 20230727
  2. APAP [Concomitant]
     Active Substance: ACETAMINOPHEN
     Indication: Premedication
     Dosage: 650 MILLIGRAM, SINGLE
     Route: 065
  3. BENADRYL [Concomitant]
     Active Substance: DIPHENHYDRAMINE HYDROCHLORIDE
     Indication: Premedication
     Dosage: 50 MILLIGRAM, SINGLE
     Route: 065
  4. PREDNISONE [Concomitant]
     Active Substance: PREDNISONE
     Indication: Premedication
     Dosage: 100 MILLIGRAM, SINGLE
     Route: 065

REACTIONS (9)
  - Death [Fatal]
  - Shock [Not Recovered/Not Resolved]
  - Acute kidney injury [Not Recovered/Not Resolved]
  - Infection [Not Recovered/Not Resolved]
  - Haemoglobin decreased [Not Recovered/Not Resolved]
  - Neutropenia [Not Recovered/Not Resolved]
  - Neurotoxicity [Unknown]
  - Cytokine release syndrome [Unknown]
  - Nausea [Unknown]

NARRATIVE: CASE EVENT DATE: 20230728
